FAERS Safety Report 5301176-4 (Version None)
Quarter: 2007Q2

REPORT INFORMATION
  Report Type: 
  Country: None (occurrence: None)
  Receive Date: 20070411
  Receipt Date: 20070406
  Transmission Date: 20071010
  Serious: Yes (Other)
  Sender: FDA-Public Use
  Company Number: 2007-015

PATIENT

DRUGS (1)
  1. FLUORESCITE, 10% 5 ML } JAPAN [Suspect]

REACTIONS (3)
  - FLUSHING [None]
  - PRURITUS [None]
  - RASH [None]
